FAERS Safety Report 6458624-6 (Version None)
Quarter: 2009Q4

REPORT INFORMATION
  Report Type: 
  Country: None (occurrence: None)
  Receive Date: 20091126
  Receipt Date: 20091117
  Transmission Date: 20100525
  Serious: Yes (Hospitalization)
  Sender: FDA-Public Use
  Company Number: FR-JNJFOC-20091105546

PATIENT
  Sex: Female

DRUGS (8)
  1. RISPERDAL [Suspect]
     Route: 048
  2. RISPERDAL [Suspect]
     Route: 048
  3. RISPERDAL [Suspect]
     Indication: SCHIZOPHRENIA
     Route: 048
  4. NEULEPTIL [Suspect]
     Indication: PSYCHOTIC DISORDER
     Route: 048
     Dates: start: 20090301
  5. DEPAKINE CHRONO [Suspect]
     Indication: EPILEPSY
     Route: 048
  6. LEPTICUR [Concomitant]
     Indication: PARKINSONISM
     Route: 048
  7. URBANYL [Concomitant]
     Indication: EPILEPSY
     Route: 048
  8. DUPHALAC [Concomitant]
     Indication: CONSTIPATION
     Route: 048

REACTIONS (5)
  - AMIMIA [None]
  - EXTRAPYRAMIDAL DISORDER [None]
  - TREATMENT NONCOMPLIANCE [None]
  - TREMOR [None]
  - VOMITING [None]
